FAERS Safety Report 13875649 (Version 1)
Quarter: 2017Q3

REPORT INFORMATION
  Report Type: Spontaneous
  Country: DE (occurrence: DE)
  Receive Date: 20170817
  Receipt Date: 20170817
  Transmission Date: 20171127
  Serious: Yes (Life-Threatening, Hospitalization, Other)
  Sender: FDA-Public Use
  Company Number: DE-SUN PHARMACEUTICAL INDUSTRIES LTD-2015R1-102440

PATIENT
  Age: 48 Year
  Weight: 48 kg

DRUGS (5)
  1. BIPERIDEN [Suspect]
     Active Substance: BIPERIDEN
     Indication: SCHIZOAFFECTIVE DISORDER
     Dosage: 4 MG, QD
     Route: 065
  2. CHLORPROTHIXENE [Suspect]
     Active Substance: CHLORPROTHIXENE
     Indication: SCHIZOAFFECTIVE DISORDER
     Dosage: 50 NG, TID
     Route: 065
  3. VALPROIC ACID. [Suspect]
     Active Substance: VALPROIC ACID
     Indication: SCHIZOAFFECTIVE DISORDER
     Dosage: 1000 MG, BID
     Route: 065
  4. QUETIAPINE. [Suspect]
     Active Substance: QUETIAPINE
     Indication: SCHIZOAFFECTIVE DISORDER
     Dosage: 600 MG, BID
     Route: 065
  5. BENPERIDOL [Suspect]
     Active Substance: BENPERIDOL
     Indication: SCHIZOAFFECTIVE DISORDER
     Dosage: 10 MG, QID
     Route: 065

REACTIONS (1)
  - Neuroleptic malignant syndrome [Recovered/Resolved]
